FAERS Safety Report 20637646 (Version 1)
Quarter: 2022Q1

REPORT INFORMATION
  Report Type: Spontaneous
  Country: US (occurrence: US)
  Receive Date: 20220325
  Receipt Date: 20220325
  Transmission Date: 20220424
  Serious: Yes (Other)
  Sender: FDA-Public Use
  Company Number: US-009507513-2203USA006150

PATIENT
  Sex: Female

DRUGS (3)
  1. STROMECTOL [Suspect]
     Active Substance: IVERMECTIN
     Dosage: 15 MILLIGRAM, QD
  2. PEPCID [Suspect]
     Active Substance: FAMOTIDINE
     Dosage: 40 MILLIGRAM
  3. PEPCID [Suspect]
     Active Substance: FAMOTIDINE
     Dosage: 20MG MORNING + 20MG NIGHT

REACTIONS (4)
  - Neuropathy peripheral [Unknown]
  - Paraesthesia [Unknown]
  - Flank pain [Unknown]
  - Therapeutic response unexpected [Unknown]
